FAERS Safety Report 14990727 (Version 2)
Quarter: 2018Q2

REPORT INFORMATION
  Report Type: Spontaneous
  Country: US (occurrence: US)
  Receive Date: 20180608
  Receipt Date: 20180611
  Transmission Date: 20180711
  Serious: Yes (Other)
  Sender: FDA-Public Use
  Company Number: US-PFIZER INC-2018233202

PATIENT
  Age: 67 Year
  Sex: Male
  Weight: 113.4 kg

DRUGS (1)
  1. XELJANZ [Suspect]
     Active Substance: TOFACITINIB CITRATE
     Indication: RHEUMATOID ARTHRITIS
     Dosage: 5 MG, UNK
     Dates: start: 201712, end: 201802

REACTIONS (7)
  - Drug ineffective [Unknown]
  - Dyspnoea [Unknown]
  - Lung infiltration [Unknown]
  - Cough [Unknown]
  - Rheumatoid lung [Unknown]
  - Laboratory test abnormal [Unknown]
  - Fatigue [Unknown]

NARRATIVE: CASE EVENT DATE: 201803
